FAERS Safety Report 26070627 (Version 2)
Quarter: 2025Q4

REPORT INFORMATION
  Report Type: Spontaneous
  Country: CA (occurrence: CA)
  Receive Date: 20251120
  Receipt Date: 20251201
  Transmission Date: 20260118
  Serious: Yes (Other)
  Sender: PFIZER
  Company Number: CA-PFIZER INC-PV202500136226

PATIENT
  Age: 71 Year
  Sex: Female

DRUGS (1)
  1. IXIFI [Suspect]
     Active Substance: INFLIXIMAB-QBTX
     Indication: Colitis ulcerative
     Dosage: 300 MG, EVERY 8 WEEKS
     Dates: start: 20250916

REACTIONS (1)
  - Forearm fracture [Unknown]

NARRATIVE: CASE EVENT DATE: 20251106
